FAERS Safety Report 23862746 (Version 3)
Quarter: 2024Q2

REPORT INFORMATION
  Report Type: Spontaneous
  Country: US (occurrence: US)
  Receive Date: 20240516
  Receipt Date: 20240620
  Transmission Date: 20240716
  Serious: No
  Sender: FDA-Public Use
  Company Number: US-PFIZER INC-202400107581

PATIENT
  Age: 12 Year
  Sex: Female

DRUGS (3)
  1. GENOTROPIN [Suspect]
     Active Substance: SOMATROPIN
     Indication: Growth hormone deficiency
     Dosage: ALTERNATES 1.4 AND 1.2MG SUBCUTANEOUS DAILY IN LEGS
     Route: 058
  2. GENOTROPIN [Suspect]
     Active Substance: SOMATROPIN
     Dosage: ALTERNATES 1.4 AND 1.2MG SUBCUTANEOUS DAILY IN LEGS
     Route: 058
  3. GENOTROPIN [Suspect]
     Active Substance: SOMATROPIN
     Dosage: 1.2MG ALTERNATING WITH 1.4MG

REACTIONS (3)
  - Device malfunction [Unknown]
  - Device physical property issue [Unknown]
  - Drug dose omission by device [Unknown]
